FAERS Safety Report 9191482 (Version 1)
Quarter: 2013Q1

REPORT INFORMATION
  Report Type: Spontaneous
  Country: FR (occurrence: FR)
  Receive Date: 20130326
  Receipt Date: 20130326
  Transmission Date: 20140127
  Serious: Yes (Death, Hospitalization)
  Sender: FDA-Public Use
  Company Number: FR-B.I. PHARMACEUTICALS,INC./RIDGEFIELD-2013-FF-00799FF

PATIENT
  Age: 88 Year
  Sex: Male

DRUGS (5)
  1. PRADAXA [Suspect]
     Indication: ATRIAL FIBRILLATION
     Dosage: 300 MG
     Route: 048
  2. CORDARONE [Concomitant]
  3. BISOPROLOL [Concomitant]
  4. INEXIUM [Concomitant]
  5. SEROPLEX [Concomitant]

REACTIONS (6)
  - Death [Fatal]
  - Multi-organ failure [Fatal]
  - Renal failure [Unknown]
  - International normalised ratio increased [Recovered/Resolved]
  - Confusional state [Unknown]
  - Fall [Unknown]
